FAERS Safety Report 25247795 (Version 2)
Quarter: 2025Q3

REPORT INFORMATION
  Report Type: Spontaneous
  Country: US (occurrence: US)
  Receive Date: 20250428
  Receipt Date: 20250905
  Transmission Date: 20251021
  Serious: Yes (Death, Life-Threatening, Disabling, Other)
  Sender: BRISTOL-MYERS SQUIBB COMPANY
  Company Number: US-BRISTOL-MYERS SQUIBB COMPANY-2025-060949

PATIENT
  Age: 29 Year
  Sex: Male

DRUGS (6)
  1. COBENFY [Suspect]
     Active Substance: TROSPIUM CHLORIDE\XANOMELINE
     Indication: Schizophrenia
     Dosage: DOSE: 50 MG/20 MG FOR FIRST 5 DAYS
     Route: 048
     Dates: start: 20250310
  2. COBENFY [Suspect]
     Active Substance: TROSPIUM CHLORIDE\XANOMELINE
     Dosage: DOSE: 100 MG/20 MG FOR 5 DAYS
     Route: 048
  3. DEPAKOTE ER [Concomitant]
     Active Substance: DIVALPROEX SODIUM
     Indication: Product used for unknown indication
     Dosage: EXTENDED RELEASE FOR 30 DAYS
     Route: 048
  4. CLOBETASOL [Concomitant]
     Active Substance: CLOBETASOL
     Indication: Product used for unknown indication
  5. SENNA [Concomitant]
     Active Substance: SENNOSIDES
     Indication: Product used for unknown indication
     Dosage: FOR 30 DAYS
     Route: 048
  6. LAMICTAL [Concomitant]
     Active Substance: LAMOTRIGINE
     Indication: Product used for unknown indication
     Dosage: FOR 30 DAYS
     Route: 048

REACTIONS (5)
  - Completed suicide [Fatal]
  - Schizoaffective disorder bipolar type [Unknown]
  - Generalised anxiety disorder [Unknown]
  - Cognitive disorder [Unknown]
  - Obesity [Unknown]

NARRATIVE: CASE EVENT DATE: 20250326
